FAERS Safety Report 17834123 (Version 2)
Quarter: 2020Q2

REPORT INFORMATION
  Report Type: Spontaneous
  Country: US (occurrence: US)
  Receive Date: 20200528
  Receipt Date: 20200623
  Transmission Date: 20200714
  Serious: No
  Sender: FDA-Public Use
  Company Number: US-CELGENEUS-USA-20200507164

PATIENT
  Sex: Male
  Weight: 88.53 kg

DRUGS (24)
  1. AMOXICILLIN. [Concomitant]
     Active Substance: AMOXICILLIN
     Indication: PRODUCT USED FOR UNKNOWN INDICATION
     Route: 065
  2. PROCRIT [Concomitant]
     Active Substance: ERYTHROPOIETIN
     Dosage: 40000 UNITS/ ML SC
     Route: 065
     Dates: start: 20190523
  3. VIDAZA [Concomitant]
     Active Substance: AZACITIDINE
     Route: 065
     Dates: start: 20180723
  4. DACOGEN [Concomitant]
     Active Substance: DECITABINE
     Indication: MYELODYSPLASTIC SYNDROME
     Dosage: 6 CYCLES
     Route: 065
     Dates: start: 20190603, end: 20191025
  5. IDHIFA [Suspect]
     Active Substance: ENASIDENIB MESYLATE
     Dosage: 200 MILLIGRAM
     Route: 048
     Dates: start: 202006
  6. RBC TRANSFUSION [Concomitant]
     Dosage: PACKED RBC
     Route: 065
     Dates: start: 20180627
  7. REVLIMID [Concomitant]
     Active Substance: LENALIDOMIDE
     Dosage: 10 MILLIGRAM
     Route: 048
     Dates: start: 20190119, end: 20190623
  8. METOCLOPRAMIDE. [Concomitant]
     Active Substance: METOCLOPRAMIDE
     Indication: PRODUCT USED FOR UNKNOWN INDICATION
     Dosage: BEFORE MEALS AND AT BED TIME
     Route: 048
     Dates: start: 20200609
  9. RBC TRANSFUSION [Concomitant]
     Indication: ANAEMIA
     Route: 065
  10. DESFERRAL [Concomitant]
     Indication: IRON OVERLOAD
     Route: 065
  11. TRAMADOL. [Concomitant]
     Active Substance: TRAMADOL
     Indication: PRODUCT USED FOR UNKNOWN INDICATION
     Dosage: HS
     Route: 048
     Dates: start: 20200226
  12. PROCRIT [Concomitant]
     Active Substance: ERYTHROPOIETIN
     Indication: PRODUCT USED FOR UNKNOWN INDICATION
     Route: 065
     Dates: start: 20161017, end: 20180309
  13. VIDAZA [Concomitant]
     Active Substance: AZACITIDINE
     Indication: MYELODYSPLASTIC SYNDROME
     Route: 065
     Dates: start: 20170313
  14. IDHIFA [Suspect]
     Active Substance: ENASIDENIB MESYLATE
     Indication: MYELODYSPLASTIC SYNDROME
     Dosage: 100 MILLIGRAM
     Route: 048
     Dates: start: 20200418
  15. DIAZEPAM. [Concomitant]
     Active Substance: DIAZEPAM
     Indication: PRODUCT USED FOR UNKNOWN INDICATION
     Dosage: 10 MILLIGRAM
     Route: 048
  16. DACOGEN [Concomitant]
     Active Substance: DECITABINE
     Route: 065
     Dates: start: 20191021, end: 20191025
  17. BENAZEPRIL-HYDROCHLOROTHIAZIDE [Concomitant]
     Indication: PRODUCT USED FOR UNKNOWN INDICATION
     Dosage: 20 MILLIGRAM
     Route: 048
  18. GLIPIZIDE. [Concomitant]
     Active Substance: GLIPIZIDE
     Indication: PRODUCT USED FOR UNKNOWN INDICATION
     Dosage: 20 MILLIGRAM
     Route: 048
  19. JANUMET [Concomitant]
     Active Substance: METFORMIN HYDROCHLORIDE\SITAGLIPTIN PHOSPHATE
     Indication: PRODUCT USED FOR UNKNOWN INDICATION
     Dosage: 100 MILLIGRAM
     Route: 048
  20. IDHIFA [Suspect]
     Active Substance: ENASIDENIB MESYLATE
     Indication: ACUTE MYELOID LEUKAEMIA
     Dosage: 100 MILLIGRAM
     Route: 048
     Dates: start: 20200408
  21. ELIQUIS [Concomitant]
     Active Substance: APIXABAN
     Indication: DEEP VEIN THROMBOSIS
     Dosage: 5 MILLIGRAM
     Route: 048
  22. MYRBETRIQ [Concomitant]
     Active Substance: MIRABEGRON
     Indication: PRODUCT USED FOR UNKNOWN INDICATION
     Dosage: 25 MILLIGRAM BED TIME
     Route: 048
     Dates: start: 20200226
  23. ZOFRAN [Concomitant]
     Active Substance: ONDANSETRON HYDROCHLORIDE
     Indication: PRODUCT USED FOR UNKNOWN INDICATION
     Dosage: 16 MILLIGRAM
     Route: 048
     Dates: start: 20200504
  24. REVLIMID [Concomitant]
     Active Substance: LENALIDOMIDE
     Indication: MYELODYSPLASTIC SYNDROME
     Dosage: 10 MILLIGRAM
     Route: 048
     Dates: start: 20190114

REACTIONS (2)
  - Nausea [Not Recovered/Not Resolved]
  - Vomiting [Not Recovered/Not Resolved]

NARRATIVE: CASE EVENT DATE: 2020
